FAERS Safety Report 18265429 (Version 1)
Quarter: 2020Q3

REPORT INFORMATION
  Report Type: Other
  Country: US (occurrence: US)
  Receive Date: 20200914
  Receipt Date: 20200914
  Transmission Date: 20201103
  Serious: No
  Sender: FDA-Public Use
  Company Number: US-LEADIANT BIOSCIENCES INC-2020STPI000200

PATIENT
  Sex: Female

DRUGS (8)
  1. SMZ?TMP [Concomitant]
     Active Substance: SULFAMETHOXAZOLE\TRIMETHOPRIM
  2. SCOPOLAMINE [HYOSCINE BUTYLBROMIDE] [Concomitant]
     Active Substance: BUTYLSCOPOLAMINE
  3. TABLOID [Concomitant]
     Active Substance: THIOGUANINE
  4. MATULANE [Suspect]
     Active Substance: PROCARBAZINE HYDROCHLORIDE
     Indication: CEREBRAL DISORDER
     Dosage: 2 CAPSULES(4 DOSES) Q6HRS
     Route: 048
     Dates: start: 20190802
  5. ONDANSETRON [Concomitant]
     Active Substance: ONDANSETRON
  6. LACTULOSE. [Concomitant]
     Active Substance: LACTULOSE
  7. GLEOSTINE [Concomitant]
     Active Substance: LOMUSTINE
  8. DEXAMETHASONE. [Concomitant]
     Active Substance: DEXAMETHASONE

REACTIONS (1)
  - Neutropenia [Not Recovered/Not Resolved]
